FAERS Safety Report 21142107 (Version 3)
Quarter: 2022Q3

REPORT INFORMATION
  Report Type: Spontaneous
  Country: US (occurrence: US)
  Receive Date: 20220728
  Receipt Date: 20220809
  Transmission Date: 20221026
  Serious: Yes (Other)
  Sender: FDA-Public Use
  Company Number: US-Vifor (International) Inc.-VIT-2022-05267

PATIENT
  Sex: Female

DRUGS (11)
  1. MIRCERA [Suspect]
     Active Substance: METHOXY POLYETHYLENE GLYCOL-EPOETIN BETA
     Indication: Product used for unknown indication
     Dates: start: 2021
  2. MIRCERA [Suspect]
     Active Substance: METHOXY POLYETHYLENE GLYCOL-EPOETIN BETA
     Dates: start: 20220201
  3. MIRCERA [Suspect]
     Active Substance: METHOXY POLYETHYLENE GLYCOL-EPOETIN BETA
     Dates: start: 20220222
  4. MIRCERA [Suspect]
     Active Substance: METHOXY POLYETHYLENE GLYCOL-EPOETIN BETA
     Dates: start: 20220308
  5. PREDNISONE [Suspect]
     Active Substance: PREDNISONE
  6. NIFEDIPINE [Suspect]
     Active Substance: NIFEDIPINE
  7. LAMICTAL [Suspect]
     Active Substance: LAMOTRIGINE
  8. ERYTHROPOIETIN [Concomitant]
     Active Substance: ERYTHROPOIETIN
     Route: 058
     Dates: start: 20220717
  9. ETOPOSIDE [Concomitant]
     Active Substance: ETOPOSIDE
     Route: 042
     Dates: start: 20220702
  10. ETOPOSIDE [Concomitant]
     Active Substance: ETOPOSIDE
     Route: 042
     Dates: start: 20220712
  11. ETOPOSIDE [Concomitant]
     Active Substance: ETOPOSIDE
     Route: 042
     Dates: start: 20220715

REACTIONS (2)
  - Aplastic anaemia [Unknown]
  - Aplasia pure red cell [Unknown]

NARRATIVE: CASE EVENT DATE: 20220101
